FAERS Safety Report 9057156 (Version 1)
Quarter: 2013Q1

REPORT INFORMATION
  Report Type: Report from Study
  Country: US (occurrence: US)
  Receive Date: 20130131
  Receipt Date: 20130131
  Transmission Date: 20140127
  Serious: No
  Sender: FDA-Public Use
  Company Number: US-ABBOTT-12P-163-0995120-00

PATIENT
  Age: 51 Year
  Sex: Male

DRUGS (5)
  1. HUMIRA [Suspect]
     Indication: CROHN^S DISEASE
     Dates: start: 20120228
  2. UNKNOWN MEDICATION [Concomitant]
     Indication: BOWEL MOVEMENT IRREGULARITY
  3. CALCIUM [Concomitant]
     Indication: NUTRITIONAL SUPPLEMENTATION
  4. FISH OIL [Concomitant]
     Indication: NUTRITIONAL SUPPLEMENTATION
  5. VITAMIN B-12 [Concomitant]
     Indication: NUTRITIONAL SUPPLEMENTATION

REACTIONS (2)
  - Inappropriate schedule of drug administration [Not Recovered/Not Resolved]
  - Blood pressure increased [Not Recovered/Not Resolved]
